FAERS Safety Report 6708468-2 (Version None)
Quarter: 2010Q2

REPORT INFORMATION
  Report Type: 
  Country: None (occurrence: None)
  Receive Date: 20100503
  Receipt Date: 20091014
  Transmission Date: 20101027
  Serious: No
  Sender: FDA-Public Use
  Company Number: US-ASTRAZENECA-2009SE20149

PATIENT
  Age: 13205 Day
  Sex: Male
  Weight: 112.5 kg

DRUGS (3)
  1. NEXIUM [Suspect]
     Indication: GASTROOESOPHAGEAL REFLUX DISEASE
     Route: 048
     Dates: start: 20091001, end: 20091014
  2. LISINOPRIL [Concomitant]
  3. PREDNISONE TAB [Concomitant]

REACTIONS (2)
  - CHEST DISCOMFORT [None]
  - ERUCTATION [None]
